FAERS Safety Report 18067777 (Version 4)
Quarter: 2021Q4

REPORT INFORMATION
  Report Type: Spontaneous
  Country: US (occurrence: US)
  Receive Date: 20200724
  Receipt Date: 20211105
  Transmission Date: 20220303
  Serious: Yes (Hospitalization, Other)
  Sender: FDA-Public Use
  Company Number: US-GILEAD-2020-0484444

PATIENT
  Age: 33 Year
  Sex: Male
  Weight: 50.794 kg

DRUGS (37)
  1. TRUVADA [Suspect]
     Active Substance: EMTRICITABINE\TENOFOVIR DISOPROXIL FUMARATE
     Indication: HIV infection
     Dosage: UNK
     Route: 048
     Dates: start: 2006, end: 20120205
  2. XANAX [Concomitant]
     Active Substance: ALPRAZOLAM
     Indication: Bipolar disorder
     Dosage: UNK
     Dates: start: 20120208
  3. XANAX [Concomitant]
     Active Substance: ALPRAZOLAM
     Indication: Anxiety
  4. XANAX [Concomitant]
     Active Substance: ALPRAZOLAM
     Indication: Depression
  5. EPZICOM [Concomitant]
     Active Substance: ABACAVIR SULFATE\LAMIVUDINE
     Indication: HIV infection
  6. ISENTRESS [Concomitant]
     Active Substance: RALTEGRAVIR POTASSIUM
     Indication: HIV infection
  7. REYATAZ [Concomitant]
     Active Substance: ATAZANAVIR SULFATE
     Indication: HIV infection
  8. SELZENTRY [Concomitant]
     Active Substance: MARAVIROC
     Indication: HIV infection
  9. GABAPENTIN [Concomitant]
     Active Substance: GABAPENTIN
     Indication: Neuropathy peripheral
  10. GABAPENTIN [Concomitant]
     Active Substance: GABAPENTIN
     Indication: Bipolar disorder
  11. MINERALS\VITAMINS [Concomitant]
     Active Substance: MINERALS\VITAMINS
     Indication: Vitamin supplementation
  12. POTASSIUM [Concomitant]
     Active Substance: POTASSIUM
     Indication: Renal failure
  13. SODIUM BICARBONATE [Concomitant]
     Active Substance: SODIUM BICARBONATE
     Indication: Renal failure
     Dosage: UNK
     Dates: start: 20120205, end: 201211
  14. VITAMIN B1 [Concomitant]
     Active Substance: THIAMINE HYDROCHLORIDE
     Indication: Hypovitaminosis
     Dosage: UNK
     Dates: start: 20120205
  15. SPIRIVA [Concomitant]
     Active Substance: TIOTROPIUM BROMIDE MONOHYDRATE
     Indication: Chronic obstructive pulmonary disease
     Dosage: UNK
     Dates: start: 20120208
  16. PROVENTIL [Concomitant]
     Active Substance: ALBUTEROL
     Indication: Dyspnoea
  17. PROVENTIL [Concomitant]
     Active Substance: ALBUTEROL
     Indication: Wheezing
  18. NEURONTIN [Concomitant]
     Active Substance: GABAPENTIN
     Indication: Neuropathy peripheral
     Dosage: UNK
     Dates: start: 20120208
  19. NEURONTIN [Concomitant]
     Active Substance: GABAPENTIN
     Indication: Bipolar disorder
  20. MUCINEX [Concomitant]
     Active Substance: GUAIFENESIN
     Indication: Hypersensitivity
     Dosage: UNK
     Dates: start: 20120529
  21. ALBUTEROL SULFATE [Concomitant]
     Active Substance: ALBUTEROL SULFATE
     Indication: Chronic obstructive pulmonary disease
     Dosage: UNK
     Dates: start: 20120529, end: 2018
  22. ALPRAZOLAM [Concomitant]
     Active Substance: ALPRAZOLAM
     Indication: Anxiety
     Dosage: UNK
     Dates: start: 20120529
  23. FEXOFENADINE [Concomitant]
     Active Substance: FEXOFENADINE HYDROCHLORIDE
     Indication: Hypersensitivity
     Dosage: UNK
     Dates: start: 20120529, end: 2018
  24. HYDROCODONE BITARTRATE AND ACETAMINOPHEN [Concomitant]
     Active Substance: ACETAMINOPHEN\HYDROCODONE BITARTRATE
     Indication: Pain
     Dosage: UNK
     Dates: start: 20120529
  25. IPRATROPIUM [Concomitant]
     Active Substance: IPRATROPIUM
     Indication: Chronic obstructive pulmonary disease
     Dosage: UNK
     Dates: start: 20120529, end: 201810
  26. LOPERAMIDE HYDROCHLORIDE [Concomitant]
     Active Substance: LOPERAMIDE HYDROCHLORIDE
     Indication: Diarrhoea
     Dosage: UNK
     Dates: start: 20120529
  27. NASONEX [Concomitant]
     Active Substance: MOMETASONE FUROATE
     Indication: Hypersensitivity
     Dosage: UNK
     Dates: start: 20120529, end: 2018
  28. NASONEX [Concomitant]
     Active Substance: MOMETASONE FUROATE
     Indication: Sinus congestion
  29. PULMICORT FLEXHALER [Concomitant]
     Active Substance: BUDESONIDE
     Indication: Chronic obstructive pulmonary disease
     Dosage: UNK
     Dates: start: 20120529
  30. SINGULAIR [Concomitant]
     Active Substance: MONTELUKAST SODIUM
     Indication: Hypersensitivity
     Dosage: UNK
     Dates: start: 20120529
  31. THIAMINE HYDROCHLORIDE [Concomitant]
     Active Substance: THIAMINE HYDROCHLORIDE
     Indication: Asthenia
     Dosage: UNK
     Dates: start: 20120529
  32. MONTELUKAST SODIUM [Concomitant]
     Active Substance: MONTELUKAST SODIUM
     Indication: Hypersensitivity
     Dosage: UNK
     Dates: start: 20131024
  33. ONMEL [Concomitant]
     Active Substance: ITRACONAZOLE
     Indication: Fungal infection
     Dosage: UNK
     Dates: start: 2013, end: 2013
  34. SEROQUEL [Concomitant]
     Active Substance: QUETIAPINE FUMARATE
     Indication: Bipolar disorder
     Dosage: UNK
     Dates: start: 20120529
  35. POTASSIUM CITRATE [Concomitant]
     Active Substance: POTASSIUM CITRATE
  36. FOSAMAX [Concomitant]
     Active Substance: ALENDRONATE SODIUM
  37. VITAMIN D NOS [Concomitant]
     Active Substance: VITAMIN D NOS

REACTIONS (17)
  - Foot fracture [Recovered/Resolved]
  - Renal tubular necrosis [Not Recovered/Not Resolved]
  - Fanconi syndrome acquired [Not Recovered/Not Resolved]
  - Renal failure [Not Recovered/Not Resolved]
  - Acute kidney injury [Not Recovered/Not Resolved]
  - Osteopenia [Not Recovered/Not Resolved]
  - Bone density decreased [Unknown]
  - Pain [Not Recovered/Not Resolved]
  - Emotional distress [Not Recovered/Not Resolved]
  - Depression [Not Recovered/Not Resolved]
  - Injury [Unknown]
  - Impaired work ability [Not Recovered/Not Resolved]
  - Anhedonia [Not Recovered/Not Resolved]
  - Economic problem [Not Recovered/Not Resolved]
  - Anxiety [Not Recovered/Not Resolved]
  - Renal impairment [Unknown]
  - Mobility decreased [Unknown]

NARRATIVE: CASE EVENT DATE: 20120205
